FAERS Safety Report 14583552 (Version 1)
Quarter: 2018Q1

REPORT INFORMATION
  Report Type: Spontaneous
  Country: US (occurrence: US)
  Receive Date: 20180228
  Receipt Date: 20180228
  Transmission Date: 20180509
  Serious: Yes (Life-Threatening, Hospitalization, Disabling)
  Sender: FDA-Public Use
  Company Number: None

PATIENT
  Age: 56 Year
  Sex: Male
  Weight: 88.91 kg

DRUGS (4)
  1. KROGER IBUPROFEN CAPSULES 200 MG [Suspect]
     Active Substance: IBUPROFEN
     Indication: MUSCULOSKELETAL PAIN
     Dosage: DOSE - 1 PILL?FREQUENCY - TOOK 2 PILLS
     Route: 048
     Dates: start: 201705, end: 201705
  2. ASPIRIN 81 MG [Concomitant]
     Active Substance: ASPIRIN
  3. GABAPENTIN. [Concomitant]
     Active Substance: GABAPENTIN
  4. VITAMIN D [Concomitant]
     Active Substance: CHOLECALCIFEROL

REACTIONS (8)
  - Rash generalised [None]
  - Visual impairment [None]
  - Skin exfoliation [None]
  - Drug hypersensitivity [None]
  - Hypoacusis [None]
  - Neuropathy peripheral [None]
  - Weight decreased [None]
  - Blister [None]

NARRATIVE: CASE EVENT DATE: 20170513
